FAERS Safety Report 20170530 (Version 2)
Quarter: 2022Q1

REPORT INFORMATION
  Report Type: Spontaneous
  Country: US (occurrence: US)
  Receive Date: 20211210
  Receipt Date: 20220118
  Transmission Date: 20220423
  Serious: Yes (Hospitalization, Disabling)
  Sender: FDA-Public Use
  Company Number: US-ELI_LILLY_AND_COMPANY-US202112000318

PATIENT
  Sex: Male

DRUGS (2)
  1. HUMALOG [Suspect]
     Active Substance: INSULIN LISPRO
     Indication: Product used for unknown indication
     Dosage: 20 U, BID (BEFORE BREAKFAST AND BEFORE DINNER)
     Route: 058
  2. HUMALOG [Suspect]
     Active Substance: INSULIN LISPRO
     Dosage: 24 U, DAILY (BEFORE LUNCH)
     Route: 058

REACTIONS (6)
  - Gastric infection [Recovering/Resolving]
  - COVID-19 [Recovering/Resolving]
  - Coma [Recovering/Resolving]
  - Lung disorder [Unknown]
  - Neuropathy peripheral [Unknown]
  - Renal disorder [Unknown]
